FAERS Safety Report 6642843-X (Version None)
Quarter: 2010Q1

REPORT INFORMATION
  Report Type: 
  Country: None (occurrence: None)
  Receive Date: 20100316
  Receipt Date: 20100305
  Transmission Date: 20100710
  Serious: Yes (Other)
  Sender: FDA-Public Use
  Company Number: 230377J09GBR

PATIENT
  Age: 50 Year
  Sex: Female

DRUGS (2)
  1. REBIF [Suspect]
     Indication: MULTIPLE SCLEROSIS
     Dosage: 8.8 MCG, 3 IN 1 WEEKS, SUBCUTANEOUS; 22 MCG, 3 IN 1 WEEKS, SUBCUTANEOUS
     Route: 058
     Dates: start: 20100128, end: 20100101
  2. REBIF [Suspect]
     Indication: MULTIPLE SCLEROSIS
     Dosage: 8.8 MCG, 3 IN 1 WEEKS, SUBCUTANEOUS; 22 MCG, 3 IN 1 WEEKS, SUBCUTANEOUS
     Route: 058
     Dates: start: 20091216, end: 20100106

REACTIONS (12)
  - BURNING SENSATION [None]
  - FATIGUE [None]
  - HEADACHE [None]
  - HEPATITIS [None]
  - HYPOAESTHESIA ORAL [None]
  - INJECTION SITE DISCOMFORT [None]
  - INJECTION SITE HAEMATOMA [None]
  - INJECTION SITE PAIN [None]
  - INJECTION SITE REACTION [None]
  - MALAISE [None]
  - MULTIPLE SCLEROSIS RELAPSE [None]
  - MUSCLE TWITCHING [None]
